FAERS Safety Report 9125565 (Version 1)
Quarter: 2013Q1

REPORT INFORMATION
  Report Type: Spontaneous
  Country: US (occurrence: US)
  Receive Date: 20130121
  Receipt Date: 20130121
  Transmission Date: 20140127
  Serious: Yes (Hospitalization)
  Sender: FDA-Public Use
  Company Number: US-GLAXOSMITHKLINE-A1008387A

PATIENT
  Age: 47 Year
  Sex: Female

DRUGS (2)
  1. ZOFRAN [Suspect]
     Indication: NAUSEA
     Route: 042
     Dates: start: 20120729, end: 20120729
  2. NO CONCURRENT MEDICATION [Concomitant]

REACTIONS (2)
  - Hypersensitivity [Not Recovered/Not Resolved]
  - Heart rate irregular [Not Recovered/Not Resolved]
